FAERS Safety Report 5874950-3 (Version None)
Quarter: 2008Q3

REPORT INFORMATION
  Report Type: 
  Country: None (occurrence: None)
  Receive Date: 20080909
  Receipt Date: 20080903
  Transmission Date: 20090109
  Serious: Yes (Death)
  Sender: FDA-Public Use
  Company Number: US-CELGENEUS-163-21880-08071080

PATIENT
  Sex: Male

DRUGS (2)
  1. REVLIMID [Suspect]
     Indication: MULTIPLE MYELOMA
     Route: 048
     Dates: start: 20070419, end: 20080501
  2. REVLIMID [Suspect]
     Route: 048
     Dates: start: 20070129, end: 20070419

REACTIONS (1)
  - CARDIAC DISORDER [None]
